FAERS Safety Report 9284488 (Version 2)
Quarter: 2013Q2

REPORT INFORMATION
  Report Type: Spontaneous
  Country: DE (occurrence: DE)
  Receive Date: 20130510
  Receipt Date: 20130605
  Transmission Date: 20140414
  Serious: Yes (Hospitalization)
  Sender: FDA-Public Use
  Company Number: PHHY2013DE035281

PATIENT
  Sex: Male

DRUGS (3)
  1. FORADIL P [Suspect]
     Indication: ASTHMA
     Dosage: 1 DF, TID
     Dates: start: 2008
  2. MIFLONIDE [Suspect]
     Indication: ASTHMA
     Dosage: 2 DF, TID
     Dates: start: 2008
  3. LISIHEXAL [Concomitant]
     Indication: CARDIAC DISORDER
     Dosage: 1 DF, TWO TIMES A DAY.

REACTIONS (12)
  - Asthma [Recovered/Resolved]
  - Visual impairment [Not Recovered/Not Resolved]
  - Dysphonia [Not Recovered/Not Resolved]
  - Dysuria [Not Recovered/Not Resolved]
  - Arthralgia [Not Recovered/Not Resolved]
  - Dry throat [Not Recovered/Not Resolved]
  - Dysphagia [Not Recovered/Not Resolved]
  - Urinary tract disorder [Not Recovered/Not Resolved]
  - Weight decreased [Not Recovered/Not Resolved]
  - Muscle spasms [Not Recovered/Not Resolved]
  - Sleep disorder [Not Recovered/Not Resolved]
  - Myalgia [Not Recovered/Not Resolved]
